FAERS Safety Report 6483965 (Version 2)
Quarter: 2019Q1

REPORT INFORMATION
  Report Type: Spontaneous
  Country: GB (occurrence: GB)
  Receive Date: 20071127
  Receipt Date: 20190326
  Transmission Date: 20190418
  Serious: Yes (Hospitalization, Other)
  Sender: FDA-Public Use
  Company Number: GXKR2007GB09810

PATIENT
  Age: 14 Year
  Sex: Male

DRUGS (2)
  1. PARACETAMOL [Suspect]
     Active Substance: ACETAMINOPHEN
     Indication: SUICIDE ATTEMPT
     Dosage: 45 MG, UNK
     Route: 048
  2. PHENYTOIN. [Interacting]
     Active Substance: PHENYTOIN
     Indication: PRODUCT USED FOR UNKNOWN INDICATION
     Dosage: 200 MG, BID
     Route: 065

REACTIONS (11)
  - Liver function test abnormal [Recovered/Resolved]
  - Metabolic acidosis [Recovering/Resolving]
  - Intentional overdose [Recovered/Resolved]
  - Abdominal pain upper [Recovering/Resolving]
  - Hepatic encephalopathy [Recovered/Resolved]
  - Hepatic failure [Recovered/Resolved]
  - Loss of consciousness [Recovered/Resolved]
  - Toxicity to various agents [Unknown]
  - Drug interaction [Recovered/Resolved]
  - Vomiting [Recovering/Resolving]
  - Encephalopathy [Recovered/Resolved]
